FAERS Safety Report 15530546 (Version 2)
Quarter: 2018Q4

REPORT INFORMATION
  Report Type: Spontaneous
  Country: US (occurrence: US)
  Receive Date: 20181018
  Receipt Date: 20181023
  Transmission Date: 20190205
  Serious: Yes (Hospitalization, Other)
  Sender: FDA-Public Use
  Company Number: US-SA-2018SA281168

PATIENT
  Age: 2 Year
  Sex: Female

DRUGS (33)
  1. OMEPRAZOLE. [Suspect]
     Active Substance: OMEPRAZOLE
     Dosage: UNK UNK, UNK
  2. VANCOMYCIN [Suspect]
     Active Substance: VANCOMYCIN
     Indication: FEBRILE INFECTION-RELATED EPILEPSY SYNDROME
     Dosage: UNK UNK, UNK
  3. TOPIRAMATE. [Concomitant]
     Active Substance: TOPIRAMATE
     Indication: FEBRILE INFECTION-RELATED EPILEPSY SYNDROME
  4. LEVETIRACETAM. [Concomitant]
     Active Substance: LEVETIRACETAM
     Indication: SEIZURE
     Dosage: UNK UNK, UNK
  5. PHENOBARBITAL. [Suspect]
     Active Substance: PHENOBARBITAL
     Indication: FEBRILE INFECTION-RELATED EPILEPSY SYNDROME
     Dosage: UNK UNK, UNK
  6. LACOSAMIDE. [Suspect]
     Active Substance: LACOSAMIDE
     Indication: FEBRILE INFECTION-RELATED EPILEPSY SYNDROME
     Dosage: UNK UNK, UNK
  7. VALPROATE DE SODIUM WINTHROP [Concomitant]
     Active Substance: VALPROATE SODIUM
     Indication: FEBRILE INFECTION-RELATED EPILEPSY SYNDROME
  8. TOPIRAMATE. [Concomitant]
     Active Substance: TOPIRAMATE
     Indication: SEIZURE
     Dosage: UNK UNK, UNK
  9. CLONAZEPAM. [Concomitant]
     Active Substance: CLONAZEPAM
     Indication: SEIZURE
     Dosage: UNK UNK, UNK
  10. LEVETIRACETAM. [Concomitant]
     Active Substance: LEVETIRACETAM
     Indication: FEBRILE INFECTION-RELATED EPILEPSY SYNDROME
  11. ANAKINRA [Concomitant]
     Active Substance: ANAKINRA
     Indication: FEBRILE INFECTION-RELATED EPILEPSY SYNDROME
  12. CEFOTAXIME SODIUM [Suspect]
     Active Substance: CEFOTAXIME SODIUM
     Indication: FEBRILE INFECTION-RELATED EPILEPSY SYNDROME
     Dosage: UNK, UNK
  13. PROPOFOL. [Concomitant]
     Active Substance: PROPOFOL
     Indication: FEBRILE INFECTION-RELATED EPILEPSY SYNDROME
  14. FELBAMATE. [Concomitant]
     Active Substance: FELBAMATE
     Indication: SEIZURE
     Dosage: UNK UNK, UNK
  15. METHYLPREDNISOLONE. [Concomitant]
     Active Substance: METHYLPREDNISOLONE
     Indication: INFLAMMATION
     Dosage: UNK UNK, UNK
  16. FOSPHENYTOIN [Suspect]
     Active Substance: FOSPHENYTOIN
     Indication: FEBRILE INFECTION-RELATED EPILEPSY SYNDROME
     Dosage: UNK UNK, UNK
  17. MIDAZOLAM [Concomitant]
     Active Substance: MIDAZOLAM HYDROCHLORIDE
     Indication: SEIZURE
     Dosage: UNK UNK, UNK
  18. FENTANYL. [Concomitant]
     Active Substance: FENTANYL
     Indication: FEBRILE INFECTION-RELATED EPILEPSY SYNDROME
  19. FELBAMATE. [Concomitant]
     Active Substance: FELBAMATE
     Indication: FEBRILE INFECTION-RELATED EPILEPSY SYNDROME
  20. METHYLPREDNISOLONE. [Concomitant]
     Active Substance: METHYLPREDNISOLONE
     Indication: FEBRILE INFECTION-RELATED EPILEPSY SYNDROME
  21. AMPICILLIN [Suspect]
     Active Substance: AMPICILLIN
     Indication: FEBRILE INFECTION-RELATED EPILEPSY SYNDROME
     Dosage: UNK UNK, UNK
  22. LORAZEPAM. [Concomitant]
     Active Substance: LORAZEPAM
     Indication: SEIZURE
     Dosage: UNK UNK, UNK
  23. LORAZEPAM. [Concomitant]
     Active Substance: LORAZEPAM
     Indication: FEBRILE INFECTION-RELATED EPILEPSY SYNDROME
  24. FENTANYL. [Concomitant]
     Active Substance: FENTANYL
     Indication: SEIZURE
     Dosage: UNK UNK, UNK
  25. CEFTRIAXONE. [Suspect]
     Active Substance: CEFTRIAXONE
     Indication: FEBRILE INFECTION-RELATED EPILEPSY SYNDROME
     Dosage: UNK UNK, UNK
  26. VALPROATE DE SODIUM WINTHROP [Concomitant]
     Active Substance: VALPROATE SODIUM
     Indication: SEIZURE
     Dosage: UNK UNK, UNK
  27. PHENYTOIN. [Suspect]
     Active Substance: PHENYTOIN
     Indication: FEBRILE INFECTION-RELATED EPILEPSY SYNDROME
  28. PARACETAMOL [Suspect]
     Active Substance: ACETAMINOPHEN
     Indication: FEBRILE INFECTION-RELATED EPILEPSY SYNDROME
     Dosage: UNK UNK, UNK
  29. PROPOFOL. [Concomitant]
     Active Substance: PROPOFOL
     Indication: SEIZURE
     Dosage: UNK UNK, UNK
  30. MIDAZOLAM [Concomitant]
     Active Substance: MIDAZOLAM HYDROCHLORIDE
     Indication: FEBRILE INFECTION-RELATED EPILEPSY SYNDROME
  31. CLONAZEPAM. [Concomitant]
     Active Substance: CLONAZEPAM
     Indication: FEBRILE INFECTION-RELATED EPILEPSY SYNDROME
  32. ANAKINRA [Concomitant]
     Active Substance: ANAKINRA
     Indication: INFLAMMATION
     Dosage: UNK UNK, UNK
  33. PRECEDEX [Concomitant]
     Active Substance: DEXMEDETOMIDINE HYDROCHLORIDE
     Indication: FEBRILE INFECTION-RELATED EPILEPSY SYNDROME
     Dosage: UNK UNK, UNK

REACTIONS (16)
  - Kawasaki^s disease [Recovered/Resolved]
  - Blood bilirubin increased [Recovered/Resolved]
  - Ventricular dysfunction [Recovering/Resolving]
  - Pyrexia [Recovered/Resolved]
  - Drug reaction with eosinophilia and systemic symptoms [Recovered/Resolved]
  - Aspartate aminotransferase increased [Recovered/Resolved]
  - Systemic lupus erythematosus [Recovered/Resolved]
  - Respiratory acidosis [Recovering/Resolving]
  - Laryngeal stenosis [Recovering/Resolving]
  - Hepatic function abnormal [Recovering/Resolving]
  - Rash generalised [Recovered/Resolved]
  - Alanine aminotransferase increased [Recovered/Resolved]
  - Lichenoid keratosis [Recovered/Resolved]
  - Tachycardia [Recovered/Resolved]
  - Eosinophilia [Recovered/Resolved]
  - Bilirubin conjugated increased [Recovered/Resolved]
